FAERS Safety Report 7503800-4 (Version None)
Quarter: 2011Q2

REPORT INFORMATION
  Report Type: 
  Country: None (occurrence: None)
  Receive Date: 20110525
  Receipt Date: 20110512
  Transmission Date: 20111010
  Serious: Yes (Hospitalization, Other)
  Sender: FDA-Public Use
  Company Number: DE-JNJFOC-20110506627

PATIENT
  Age: 20 Year
  Sex: Male
  Weight: 79 kg

DRUGS (5)
  1. REMICADE [Suspect]
     Indication: CROHN'S DISEASE
     Dosage: TOTAL 2 INFUSIONS
     Route: 042
     Dates: start: 20110511
  2. REMICADE [Suspect]
     Indication: PYODERMA GANGRENOSUM
     Route: 042
     Dates: start: 20110413
  3. REMICADE [Suspect]
     Dosage: TOTAL 2 INFUSIONS
     Route: 042
     Dates: start: 20110511
  4. REMICADE [Suspect]
     Route: 042
     Dates: start: 20110413
  5. PREDNISOLONE [Concomitant]
     Indication: CROHN'S DISEASE
     Dates: start: 20110101

REACTIONS (4)
  - CHEST PAIN [None]
  - HYPERSENSITIVITY [None]
  - DYSPNOEA [None]
  - PALPITATIONS [None]
